FAERS Safety Report 5608422-8 (Version None)
Quarter: 2008Q1

REPORT INFORMATION
  Report Type: 
  Country: None (occurrence: None)
  Receive Date: 20080130
  Receipt Date: 20080116
  Transmission Date: 20080703
  Serious: Yes (Other)
  Sender: FDA-Public Use
  Company Number: FR-GENENTECH-254618

PATIENT
  Age: 44 Year
  Sex: Male

DRUGS (6)
  1. RITUXIMAB [Suspect]
     Indication: B-CELL LYMPHOMA
     Dosage: UNK, Q3W
     Route: 042
     Dates: start: 20050510
  2. RITUXIMAB [Suspect]
     Dosage: 375 MG/M2, Q2M
     Route: 042
     Dates: end: 20070903
  3. CYCLOPHOSPHAMIDE [Suspect]
     Indication: B-CELL LYMPHOMA
     Dosage: 750 MG/M2, Q21D
     Route: 042
     Dates: start: 20050510, end: 20050823
  4. DOXORUBICIN HCL [Suspect]
     Indication: B-CELL LYMPHOMA
     Dosage: 50 MG/M2, Q21D
     Route: 042
     Dates: start: 20050510, end: 20050823
  5. VINCRISTINE [Suspect]
     Indication: B-CELL LYMPHOMA
     Dosage: 2 MG, Q21D
     Route: 042
     Dates: start: 20050510, end: 20050823
  6. PREDNISONE TAB [Concomitant]
     Indication: B-CELL LYMPHOMA
     Dosage: 60 MG, Q21D
     Route: 042
     Dates: start: 20050510, end: 20050823

REACTIONS (2)
  - ACUTE MYELOID LEUKAEMIA [None]
  - LEUKOCYTOSIS [None]
